FAERS Safety Report 21934998 (Version 1)
Quarter: 2023Q1

REPORT INFORMATION
  Report Type: Spontaneous
  Country: GB (occurrence: GB)
  Receive Date: 20230201
  Receipt Date: 20230201
  Transmission Date: 20230418
  Serious: Yes (Death, Other)
  Sender: FDA-Public Use
  Company Number: None

PATIENT
  Age: 61 Year
  Sex: Male
  Weight: 60 kg

DRUGS (8)
  1. TREMFYA [Suspect]
     Active Substance: GUSELKUMAB
     Indication: Psoriasis
     Dosage: 100MG EVERY 8 WEEKS;
     Route: 065
     Dates: start: 20190626
  2. TREMFYA [Suspect]
     Active Substance: GUSELKUMAB
  3. TREMFYA [Suspect]
     Active Substance: GUSELKUMAB
  4. APIXABAN [Concomitant]
     Active Substance: APIXABAN
  5. BISOPROLOL [Concomitant]
     Active Substance: BISOPROLOL
  6. NICOTINE [Concomitant]
     Active Substance: NICOTINE
  7. ALBUTEROL [Concomitant]
     Active Substance: ALBUTEROL
     Dosage: 100MCG/DOSE (2 PUFFS AS REQUIRED)
     Route: 055
  8. TRELEGY ELLIPTA [Concomitant]
     Active Substance: FLUTICASONE FUROATE\UMECLIDINIUM BROMIDE\VILANTEROL TRIFENATATE
     Dosage: 55MCG/DOSE/22MCG/DOSE DRY POWDER INHALER ONCE A DAY
     Route: 055

REACTIONS (3)
  - Cardiac arrest [Fatal]
  - Unresponsive to stimuli [Not Recovered/Not Resolved]
  - Brain injury [Not Recovered/Not Resolved]

NARRATIVE: CASE EVENT DATE: 20220301
